FAERS Safety Report 6074488-7 (Version None)
Quarter: 2009Q1

REPORT INFORMATION
  Report Type: 
  Country: None (occurrence: None)
  Receive Date: 20090206
  Receipt Date: 20090202
  Transmission Date: 20090719
  Serious: Yes (Hospitalization)
  Sender: FDA-Public Use
  Company Number: 2009SP002388

PATIENT
  Age: 51 Year
  Sex: Female

DRUGS (5)
  1. CELESTONE [Suspect]
     Indication: DRUG USE FOR UNKNOWN INDICATION
     Dosage: 1 DF; ONCE; IM
     Route: 030
     Dates: start: 20080627
  2. PREDNISOLONE [Suspect]
     Indication: DRUG USE FOR UNKNOWN INDICATION
     Dosage: 60 MG; QD; PO
     Route: 048
     Dates: start: 20080628
  3. N-ACETYL ASPARTYL GLUTAMIC ACID (ISOSPAGLUMIC ACID) [Suspect]
     Indication: DRUG USE FOR UNKNOWN INDICATION
     Dosage: OPH
     Route: 047
     Dates: start: 20080601
  4. BECONASE [Suspect]
     Indication: DRUG USE FOR UNKNOWN INDICATION
     Dosage: NAS
     Route: 045
     Dates: start: 20080601
  5. ENOXOLONE (ENOXOLONE) [Suspect]
     Indication: DRUG USE FOR UNKNOWN INDICATION
     Dosage: TOP
     Route: 061
     Dates: start: 20080601

REACTIONS (9)
  - CONDITION AGGRAVATED [None]
  - CONJUNCTIVITIS [None]
  - EOSINOPHILIA [None]
  - ERYTHEMA MULTIFORME [None]
  - HYPERSENSITIVITY [None]
  - INFLAMMATION [None]
  - LYMPHOPENIA [None]
  - STEVENS-JOHNSON SYNDROME [None]
  - VISION BLURRED [None]
